FAERS Safety Report 24604874 (Version 1)
Quarter: 2024Q4

REPORT INFORMATION
  Report Type: Spontaneous
  Country: DE (occurrence: DE)
  Receive Date: 20241111
  Receipt Date: 20241111
  Transmission Date: 20250115
  Serious: Yes (Other)
  Sender: NOVARTIS
  Company Number: DE-002147023-NVSC2024DE216879

PATIENT
  Age: 54 Year
  Sex: Female

DRUGS (1)
  1. TASIGNA [Suspect]
     Active Substance: NILOTINIB
     Indication: Chronic myeloid leukaemia
     Dosage: 300 MG, BID (2X DAILY)
     Route: 065
     Dates: start: 201905, end: 202402

REACTIONS (13)
  - Leukaemia [Unknown]
  - Philadelphia chromosome positive [Unknown]
  - Cardiomyopathy [Unknown]
  - Pruritus [Recovered/Resolved]
  - Fatigue [Unknown]
  - Migraine [Unknown]
  - Pollakiuria [Recovering/Resolving]
  - Intraocular pressure increased [Recovering/Resolving]
  - Arthralgia [Recovered/Resolved]
  - Pain in extremity [Unknown]
  - Pain [Unknown]
  - Feeling abnormal [Unknown]
  - Liver function test increased [Unknown]

NARRATIVE: CASE EVENT DATE: 20240101
